FAERS Safety Report 16935404 (Version 8)
Quarter: 2019Q4

REPORT INFORMATION
  Report Type: Report from Study
  Country: KR (occurrence: KR)
  Receive Date: 20191018
  Receipt Date: 20191227
  Transmission Date: 20200122
  Serious: Yes (Hospitalization)
  Sender: FDA-Public Use
  Company Number: KR-ROCHE-2235730

PATIENT
  Age: 77 Year
  Sex: Male
  Weight: 51 kg

DRUGS (48)
  1. ATEZOLIZUMAB. [Suspect]
     Active Substance: ATEZOLIZUMAB
     Indication: NON-SMALL CELL LUNG CANCER METASTATIC
     Dosage: DATE OF MOST RECENT DOSE PRIOR TO SAE ON 13/OCT/2018 AT 12:25.?ON 30/SEP/2019 AT 13:20 AND 13:50, HE
     Route: 041
     Dates: start: 20181008
  2. CHLORPHENIRAMINE MALEATE. [Concomitant]
     Active Substance: CHLORPHENIRAMINE MALEATE
     Indication: COUGH
     Route: 048
     Dates: start: 20181222, end: 20190103
  3. IBUPROFEN. [Concomitant]
     Active Substance: IBUPROFEN
     Indication: PAIN IN EXTREMITY
     Route: 048
     Dates: start: 20190103, end: 20190207
  4. ASPIRIN [ACETYLSALICYLIC ACID] [Concomitant]
     Active Substance: ASPIRIN
     Indication: HYPERTENSION
     Route: 048
     Dates: end: 20191006
  5. ASPIRIN [ACETYLSALICYLIC ACID] [Concomitant]
     Active Substance: ASPIRIN
     Route: 048
     Dates: start: 20191007, end: 20191016
  6. EBASTEL [Concomitant]
     Active Substance: EBASTINE
     Route: 048
     Dates: start: 20191006
  7. CHLORPHENAMINE MALEATE;GUAIFENESIN;METHYLEPHEDRINE HYDROCHLORIDE-DL [Concomitant]
     Dosage: 2  TABLET
     Route: 048
     Dates: start: 20190810, end: 20190811
  8. SEROQUEL [Concomitant]
     Active Substance: QUETIAPINE FUMARATE
     Route: 048
     Dates: start: 20191007, end: 20191016
  9. LOPERAMIDE [Concomitant]
     Active Substance: LOPERAMIDE
     Indication: DIARRHOEA
     Route: 048
     Dates: start: 20191114, end: 20191118
  10. MEGACE [Concomitant]
     Active Substance: MEGESTROL ACETATE
     Indication: DECREASED APPETITE
     Route: 048
     Dates: start: 20180921
  11. GUAIFENESIN. [Concomitant]
     Active Substance: GUAIFENESIN
     Indication: COUGH
     Route: 048
     Dates: start: 20181222, end: 20190103
  12. DL-METHYLEPHEDRINE HYDROCHLORIDE [Concomitant]
     Active Substance: METHYLEPHEDRINE HYDROCHLORIDE, (+/-)-
     Route: 065
     Dates: start: 20190810, end: 20190811
  13. TWYNFORGE [Concomitant]
     Indication: HYPERTENSION
     Dosage: 40/5 MG
     Route: 048
  14. SOLONDO [Concomitant]
     Active Substance: PREDNISOLONE
     Route: 048
     Dates: start: 20190801, end: 20190819
  15. SOXINASE [Concomitant]
     Indication: DYSPEPSIA
     Route: 048
     Dates: start: 20190808, end: 20190811
  16. MICARDIS [Concomitant]
     Active Substance: TELMISARTAN
     Route: 048
     Dates: start: 20191007, end: 20191016
  17. NORVASC [Concomitant]
     Active Substance: AMLODIPINE BESYLATE
     Route: 048
     Dates: start: 20191007, end: 20191016
  18. DUPHALAC EASY [Concomitant]
     Indication: CONSTIPATION
     Route: 048
     Dates: start: 20191015, end: 20191024
  19. CHLORPHENIRAMINE [CHLORPHENAMINE] [Concomitant]
     Active Substance: CHLORPHENIRAMINE
     Route: 042
     Dates: start: 20181221, end: 20181221
  20. DENOGAN [Concomitant]
     Active Substance: PROPACETAMOL HYDROCHLORIDE
     Indication: PYREXIA
     Route: 042
     Dates: start: 20181221, end: 20181221
  21. DENOGAN [Concomitant]
     Active Substance: PROPACETAMOL HYDROCHLORIDE
     Route: 065
     Dates: start: 20190807, end: 20190814
  22. GUAIFENESIN. [Concomitant]
     Active Substance: GUAIFENESIN
     Route: 065
     Dates: start: 20190810, end: 20190811
  23. CURAN [Concomitant]
     Active Substance: RANITIDINE HYDROCHLORIDE
     Indication: DYSPEPSIA
     Route: 048
     Dates: start: 20190415, end: 20190906
  24. MAGMIL S [Concomitant]
     Indication: CONSTIPATION
     Route: 048
     Dates: start: 20191014, end: 20191031
  25. CHLORPHENIRAMINE [CHLORPHENAMINE] [Concomitant]
     Active Substance: CHLORPHENIRAMINE
     Route: 042
     Dates: start: 20191010, end: 20191017
  26. DIHYDROCODEINE BITARTRATE [Concomitant]
     Active Substance: DIHYDROCODEINE BITARTRATE
     Route: 065
     Dates: start: 20190810, end: 20190811
  27. LYRICA [Concomitant]
     Active Substance: PREGABALIN
     Indication: PAIN IN EXTREMITY
     Dosage: 1 CAPSULE
     Route: 048
     Dates: start: 20190415
  28. MOKTIN [Concomitant]
     Dosage: 600 OTHER
     Route: 048
     Dates: start: 20190506, end: 20190507
  29. GLYCERIN [GLYCEROL] [Concomitant]
     Indication: CONSTIPATION
     Route: 054
     Dates: start: 20191015, end: 20191015
  30. DIHYDROCODEINE BITARTRATE [Concomitant]
     Active Substance: DIHYDROCODEINE BITARTRATE
     Indication: COUGH
     Route: 048
     Dates: start: 20181222, end: 20190103
  31. SOLONDO [Concomitant]
     Active Substance: PREDNISOLONE
     Indication: PRURITUS
     Route: 048
     Dates: start: 20190708, end: 20190714
  32. SOLONDO [Concomitant]
     Active Substance: PREDNISOLONE
     Indication: RASH
     Route: 048
     Dates: start: 20190715, end: 20190731
  33. CALDOLOR [Concomitant]
     Active Substance: IBUPROFEN
     Indication: PNEUMONIA
     Route: 042
     Dates: start: 20190807, end: 20190807
  34. IBUPROFEN. [Concomitant]
     Active Substance: IBUPROFEN
     Route: 048
     Dates: start: 20191024
  35. PLACEBO [Suspect]
     Active Substance: UNSPECIFIED INGREDIENT
     Indication: NON-SMALL CELL LUNG CANCER METASTATIC
     Dosage: DATE OF MOST RECENT DOSE PRIOR TO SAE ON 13/OCT/2018 AT 13:25
     Route: 042
     Dates: start: 20181008
  36. TRESTAN [CARNITINE HYDROCHLORIDE;CYANOCOBALAMIN;CYPROHEPTADINE OROTATE [Concomitant]
     Indication: DECREASED APPETITE
     Route: 048
     Dates: start: 20181213, end: 20191005
  37. TRESTAN [CARNITINE HYDROCHLORIDE;CYANOCOBALAMIN;CYPROHEPTADINE OROTATE [Concomitant]
     Route: 048
     Dates: start: 20191006
  38. DL-METHYLEPHEDRINE HYDROCHLORIDE [Concomitant]
     Active Substance: METHYLEPHEDRINE HYDROCHLORIDE, (+/-)-
     Indication: COUGH
     Route: 048
     Dates: start: 20181222, end: 20190103
  39. IBUPROFEN. [Concomitant]
     Active Substance: IBUPROFEN
     Route: 048
     Dates: start: 20190326, end: 20191006
  40. TWYNFORGE [Concomitant]
     Indication: HYPERTENSION
     Dosage: 1 TABLET
     Route: 048
     Dates: end: 20191006
  41. EBASTEL [Concomitant]
     Active Substance: EBASTINE
     Indication: RHINORRHOEA
     Route: 048
     Dates: start: 20190801, end: 20191005
  42. CHLORPHENIRAMINE MALEATE. [Concomitant]
     Active Substance: CHLORPHENIRAMINE MALEATE
     Route: 042
     Dates: start: 20190507, end: 20190507
  43. CHLORPHENIRAMINE MALEATE. [Concomitant]
     Active Substance: CHLORPHENIRAMINE MALEATE
     Route: 042
     Dates: start: 20191009, end: 20191009
  44. PARIET [Concomitant]
     Active Substance: RABEPRAZOLE SODIUM
     Route: 048
     Dates: start: 20191011
  45. MAGMIL S [Concomitant]
     Route: 048
     Dates: start: 20191014, end: 20191031
  46. WINUF PERI [Concomitant]
     Active Substance: AMINO ACIDS\DEXTROSE\ELECTROLYTES NOS\SOYBEAN OIL\VITAMINS
     Route: 042
     Dates: start: 20190807, end: 20190814
  47. MORPHINE SULFATE. [Concomitant]
     Active Substance: MORPHINE SULFATE
     Indication: ABDOMINAL PAIN
     Route: 048
     Dates: start: 20190814, end: 20190814
  48. MUCOSTA [Concomitant]
     Active Substance: REBAMIPIDE
     Route: 048
     Dates: start: 20191011

REACTIONS (3)
  - Pneumonia [Recovered/Resolved]
  - Rash [Recovered/Resolved]
  - Stomatitis [Not Recovered/Not Resolved]

NARRATIVE: CASE EVENT DATE: 20181222
